FAERS Safety Report 17181460 (Version 1)
Quarter: 2019Q4

REPORT INFORMATION
  Report Type: Report from Study
  Country: ES (occurrence: ES)
  Receive Date: 20191219
  Receipt Date: 20191219
  Transmission Date: 20200122
  Serious: Yes (Hospitalization)
  Sender: FDA-Public Use
  Company Number: ES-EXELIXIS-CABO-19026042

PATIENT
  Sex: Male

DRUGS (3)
  1. CABOMETYX [Suspect]
     Active Substance: CABOZANTINIB S-MALATE
     Dosage: 40 MG (FROM MONDAY TO FRIDAY AND AFTER THAT HE TAKES 2 DAYS BREAK)
     Route: 048
  2. CABOMETYX [Suspect]
     Active Substance: CABOZANTINIB S-MALATE
     Indication: RENAL CELL CARCINOMA
     Dosage: 60 MG (OVER 7 CONSECUTIVE DAYS AND 2 DAYS WITHOUT TAKING ANYTHING)
     Route: 048
  3. CABOMETYX [Suspect]
     Active Substance: CABOZANTINIB S-MALATE
     Dosage: 40 MG (FROM MONDAY TO FRIDAY AND AFTER THAT HE TAKES 2 DAYS BREAK)
     Route: 048

REACTIONS (5)
  - Muscle fatigue [Unknown]
  - Fatigue [Unknown]
  - Blood creatinine abnormal [Unknown]
  - Product dose omission [Unknown]
  - Diarrhoea [Unknown]
